FAERS Safety Report 8927077 (Version 1)
Quarter: 2012Q4

REPORT INFORMATION
  Report Type: 
  Country: CO (occurrence: CO)
  Receive Date: 20121127
  Receipt Date: 20121127
  Transmission Date: 20130627
  Serious: Yes (Other)
  Sender: FDA-Public Use
  Company Number: CO-PFIZER INC-2012296187

PATIENT
  Age: 83 Year
  Sex: Female

DRUGS (3)
  1. LYRICA [Suspect]
     Indication: SPINAL PAIN
     Dosage: 75 mg, 1x/day (at night)
     Route: 048
     Dates: start: 201206
  2. COZAAR [Concomitant]
     Indication: HYPERTENSION
     Dosage: 100 mg, 1x/day
     Route: 048
     Dates: start: 201206
  3. NEBILET [Concomitant]
     Indication: HYPERTENSION
     Dosage: 5 mg, 1x/day
     Route: 048
     Dates: start: 201206

REACTIONS (1)
  - Cataract [Not Recovered/Not Resolved]
